FAERS Safety Report 14474887 (Version 1)
Quarter: 2018Q1

REPORT INFORMATION
  Report Type: Spontaneous
  Country: US (occurrence: US)
  Receive Date: 20180201
  Receipt Date: 20180201
  Transmission Date: 20180509
  Serious: Yes (Hospitalization)
  Sender: FDA-Public Use
  Company Number: US-MYLANLABS-2018M1006735

PATIENT
  Age: 61 Year
  Sex: Male

DRUGS (3)
  1. CANNABIS [Concomitant]
     Active Substance: CANNABIS SATIVA SUBSP. INDICA TOP
     Indication: PRODUCT USED FOR UNKNOWN INDICATION
     Route: 065
  2. DIAZEPAM. [Concomitant]
     Active Substance: DIAZEPAM
     Indication: PRODUCT USED FOR UNKNOWN INDICATION
     Route: 065
  3. BACLOFEN. [Suspect]
     Active Substance: BACLOFEN
     Indication: PRODUCT USED FOR UNKNOWN INDICATION
     Dosage: 10 BACLOFEN 20 MG TABLETS A DAY
     Route: 065

REACTIONS (10)
  - Delirium [Unknown]
  - Drug withdrawal syndrome [Unknown]
  - Speech disorder [Unknown]
  - Agitation [Recovering/Resolving]
  - Confusional state [Unknown]
  - Insomnia [Unknown]
  - Hallucinations, mixed [Unknown]
  - Blood creatine phosphokinase increased [Unknown]
  - Mydriasis [Unknown]
  - Overdose [Unknown]
